FAERS Safety Report 21087644 (Version 1)
Quarter: 2022Q3

REPORT INFORMATION
  Report Type: Spontaneous
  Country: US (occurrence: None)
  Receive Date: 20220714
  Receipt Date: 20220714
  Transmission Date: 20221027
  Serious: No
  Sender: FDA-Public Use
  Company Number: None

PATIENT
  Age: 72 Year
  Sex: Male
  Weight: 63 kg

DRUGS (8)
  1. INLYTA [Suspect]
     Active Substance: AXITINIB
     Indication: Renal cancer
     Dosage: FREQUENCY : TWICE A DAY;?
     Route: 048
     Dates: start: 20220401
  2. KEYTRUDA [Suspect]
     Active Substance: PEMBROLIZUMAB
     Indication: Renal cancer
     Route: 042
  3. ACETYLCYSTEINE [Concomitant]
     Active Substance: ACETYLCYSTEINE
  4. ATORVASTATIN [Concomitant]
     Active Substance: ATORVASTATIN
  5. ZINC [Concomitant]
     Active Substance: ZINC
  6. VITAMINS [Concomitant]
     Active Substance: VITAMINS
  7. CALCIUM\VITAMIN D [Concomitant]
     Active Substance: CALCIUM\VITAMIN D
  8. VITAMIN C [Concomitant]
     Active Substance: ASCORBIC ACID

REACTIONS (3)
  - Headache [None]
  - Fatigue [None]
  - Blood pressure increased [None]
